FAERS Safety Report 16279886 (Version 2)
Quarter: 2019Q2

REPORT INFORMATION
  Report Type: Spontaneous
  Country: US (occurrence: US)
  Receive Date: 20190507
  Receipt Date: 20190515
  Transmission Date: 20190711
  Serious: Yes (Other)
  Sender: FDA-Public Use
  Company Number: US-HORIZON-ACT-0120-2019

PATIENT
  Age: 67 Year
  Sex: Female

DRUGS (23)
  1. CLOBETASOL [Concomitant]
     Active Substance: CLOBETASOL
  2. HALOBETASOL [Concomitant]
     Active Substance: HALOBETASOL PROPIONATE
  3. GLIPIZIDE. [Concomitant]
     Active Substance: GLIPIZIDE
  4. IMIQUIMOD. [Concomitant]
     Active Substance: IMIQUIMOD
  5. LISINOPRIL. [Concomitant]
     Active Substance: LISINOPRIL
  6. CETIRIZINE [Concomitant]
     Active Substance: CETIRIZINE HYDROCHLORIDE
  7. TRIAMCINOLONE [Concomitant]
     Active Substance: TRIAMCINOLONE
  8. GABAPENTIN. [Concomitant]
     Active Substance: GABAPENTIN
  9. MUPIROCIN. [Concomitant]
     Active Substance: MUPIROCIN
  10. OFLOXACIN. [Concomitant]
     Active Substance: OFLOXACIN
  11. LEVOTHYROXINE. [Concomitant]
     Active Substance: LEVOTHYROXINE
  12. OMEPRAZOLE. [Concomitant]
     Active Substance: OMEPRAZOLE
  13. ATORVASTATIN [Concomitant]
     Active Substance: ATORVASTATIN
  14. INSULIN [Concomitant]
     Active Substance: INSULIN NOS
  15. KETOCONAZOLE. [Concomitant]
     Active Substance: KETOCONAZOLE
  16. PATANOL [Concomitant]
     Active Substance: OLOPATADINE HYDROCHLORIDE
  17. ASPIRIN. [Concomitant]
     Active Substance: ASPIRIN
  18. HYDROCORTISONE. [Concomitant]
     Active Substance: HYDROCORTISONE
  19. METFORMIN [Concomitant]
     Active Substance: METFORMIN HYDROCHLORIDE
  20. TARGRETIN [Concomitant]
     Active Substance: BEXAROTENE
  21. ACTIMMUNE [Suspect]
     Active Substance: INTERFERON GAMMA-1B
     Indication: CUTANEOUS T-CELL LYMPHOMA
     Dosage: 0.5 ML (100 MCG) UNDER THE SKIN THREE TIMES WEEKLY
     Route: 058
     Dates: start: 20160829
  22. KETOROLAC [Concomitant]
     Active Substance: KETOROLAC\KETOROLAC TROMETHAMINE
  23. ROSUVASTATIN. [Concomitant]
     Active Substance: ROSUVASTATIN

REACTIONS (3)
  - Cataract [Unknown]
  - Cataract operation [Unknown]
  - Off label use [Unknown]

NARRATIVE: CASE EVENT DATE: 20190429
